FAERS Safety Report 6641558-1 (Version None)
Quarter: 2010Q1

REPORT INFORMATION
  Report Type: 
  Country: None (occurrence: None)
  Receive Date: 20100317
  Receipt Date: 20100317
  Transmission Date: 20100710
  Serious: Yes (Other)
  Sender: FDA-Public Use
  Company Number: None

PATIENT
  Age: 56 Year
  Sex: Male
  Weight: 76.3 kg

DRUGS (14)
  1. WARFARIN SODIUM [Suspect]
     Indication: DEEP VEIN THROMBOSIS
     Dosage: 7.5MG DAILY PO
     Route: 048
  2. WARFARIN SODIUM [Suspect]
     Indication: PROPHYLAXIS
     Dosage: 7.5MG DAILY PO
     Route: 048
  3. AMIODARONE HCL [Concomitant]
  4. ASPIRIN [Concomitant]
  5. CHLORHEXIDINE GLUCONATE [Concomitant]
  6. DIAZEPAM [Concomitant]
  7. DOCUSATE [Concomitant]
  8. OSCITALOPRAM [Concomitant]
  9. FERROUS SULFATE TAB [Concomitant]
  10. GABAPENTIN [Concomitant]
  11. LANSOPRAZOLE [Concomitant]
  12. LISINOPRIL [Concomitant]
  13. M.V.I. [Concomitant]
  14. OXY/APAD [Concomitant]

REACTIONS (2)
  - INTERNATIONAL NORMALISED RATIO INCREASED [None]
  - VERTIGO POSITIONAL [None]
